FAERS Safety Report 23342256 (Version 1)
Quarter: 2023Q4

REPORT INFORMATION
  Report Type: Spontaneous
  Country: JP (occurrence: JP)
  Receive Date: 20231227
  Receipt Date: 20231227
  Transmission Date: 20240110
  Serious: Yes (Hospitalization, Other)
  Sender: FDA-Public Use
  Company Number: JP-ELI_LILLY_AND_COMPANY-JP202312011094

PATIENT
  Age: 68 Year
  Sex: Female

DRUGS (3)
  1. INSULIN LISPRO [Suspect]
     Active Substance: INSULIN LISPRO
     Indication: Type 2 diabetes mellitus
     Route: 058
  2. INSULIN DEGLUDEC [Suspect]
     Active Substance: INSULIN DEGLUDEC
     Indication: Type 2 diabetes mellitus
     Route: 058
  3. DEXTROSE [Suspect]
     Active Substance: DEXTROSE\DEXTROSE MONOHYDRATE
     Indication: Hypoglycaemia
     Route: 041

REACTIONS (4)
  - Suicide attempt [Unknown]
  - Hypoglycaemia [Recovered/Resolved]
  - Extra dose administered [Unknown]
  - Hepatic function abnormal [Recovered/Resolved]
